FAERS Safety Report 7810556-4 (Version None)
Quarter: 2011Q4

REPORT INFORMATION
  Report Type: 
  Country: None (occurrence: None)
  Receive Date: 20111013
  Receipt Date: 20111004
  Transmission Date: 20120403
  Serious: Yes (Hospitalization)
  Sender: FDA-Public Use
  Company Number: 2008BI025131

PATIENT
  Age: 60 Year
  Sex: Female
  Weight: 64 kg

DRUGS (7)
  1. METFORMIN HYDROCHLORIDE [Concomitant]
     Indication: DIABETES MELLITUS
     Dates: start: 20100101
  2. DIOVAN HCT [Concomitant]
     Indication: HYPERTENSION
  3. CARDIZEM [Concomitant]
     Indication: HYPERTENSION
  4. AVONEX [Suspect]
     Indication: MULTIPLE SCLEROSIS
     Route: 030
     Dates: start: 20080801
  5. TYLENOL-500 [Concomitant]
     Indication: PREMEDICATION
  6. MOBIC [Concomitant]
     Indication: PAIN IN EXTREMITY
  7. AVONEX [Suspect]
     Route: 030
     Dates: start: 20051005, end: 20080801

REACTIONS (7)
  - DIZZINESS [None]
  - MUSCLE SPASMS [None]
  - HYPERTENSION [None]
  - GASTROOESOPHAGEAL REFLUX DISEASE [None]
  - MULTIPLE SCLEROSIS RELAPSE [None]
  - CHEST PAIN [None]
  - TREMOR [None]
